FAERS Safety Report 10160575 (Version 3)
Quarter: 2014Q3

REPORT INFORMATION
  Report Type: Spontaneous
  Country: DE (occurrence: DE)
  Receive Date: 20140508
  Receipt Date: 20140702
  Transmission Date: 20150326
  Serious: Yes (Hospitalization, Other)
  Sender: FDA-Public Use
  Company Number: PHHY2014DE055724

PATIENT
  Sex: Female

DRUGS (7)
  1. FENISTIL [Concomitant]
     Active Substance: DIMETHINDENE
     Indication: DECREASED APPETITE
  2. CLEXANE [Concomitant]
     Active Substance: ENOXAPARIN SODIUM
     Indication: THROMBOSIS PROPHYLAXIS
     Dates: end: 20140428
  3. ARIXTRA [Concomitant]
     Active Substance: FONDAPARINUX SODIUM
     Indication: THROMBOSIS PROPHYLAXIS
     Dates: end: 20140428
  4. TASIGNA [Suspect]
     Active Substance: NILOTINIB
     Indication: CHRONIC MYELOID LEUKAEMIA
     Dosage: 600 MG, DAILY
     Route: 048
     Dates: start: 20120425
  5. FENISTIL [Concomitant]
     Active Substance: DIMETHINDENE
     Indication: TREMOR
  6. FENISTIL [Concomitant]
     Active Substance: DIMETHINDENE
     Indication: FATIGUE
  7. FENISTIL [Concomitant]
     Active Substance: DIMETHINDENE
     Indication: PALPITATIONS

REACTIONS (6)
  - Palpitations [Unknown]
  - Tremor [Unknown]
  - Fatigue [Unknown]
  - Mental disorder [Unknown]
  - Concomitant disease aggravated [Unknown]
  - Decreased appetite [Unknown]

NARRATIVE: CASE EVENT DATE: 20140428
